FAERS Safety Report 4384770-7 (Version None)
Quarter: 2004Q2

REPORT INFORMATION
  Report Type: 
  Country: None (occurrence: None)
  Receive Date: 20040623
  Receipt Date: 20040623
  Transmission Date: 20050107
  Serious: Yes (Other)
  Sender: FDA-Public Use
  Company Number: None

PATIENT
  Age: 29 Year
  Sex: Female
  Weight: 73.9363 kg

DRUGS (1)
  1. TRINESSA VARIES-28 DAY CYCLE WATCON PHARM [Suspect]
     Indication: CONTRACEPTION
     Dosage: DAILY ORAL
     Route: 048

REACTIONS (2)
  - METRORRHAGIA [None]
  - PHARMACEUTICAL PRODUCT COMPLAINT [None]
